FAERS Safety Report 7793453-2 (Version None)
Quarter: 2011Q4

REPORT INFORMATION
  Report Type: 
  Country: None (occurrence: None)
  Receive Date: 20111003
  Receipt Date: 20110928
  Transmission Date: 20120403
  Serious: Yes (Life-Threatening, Hospitalization, Other)
  Sender: FDA-Public Use
  Company Number: PHHY2011GB85887

PATIENT
  Age: 61 Year
  Sex: Female
  Weight: 78 kg

DRUGS (7)
  1. ACETAMINOPHEN [Concomitant]
  2. AMOXICILLIN AND CLAVULANATE POTASSIUM [Suspect]
     Indication: PROPHYLAXIS
     Dosage: 1.2 G, UNK
     Route: 042
     Dates: start: 20110915
  3. ROCURONIUM BROMIDE [Suspect]
     Indication: NEUROMUSCULAR BLOCKADE
     Dosage: UNK
     Dates: start: 20110915
  4. PROPOFOL [Suspect]
     Indication: INDUCTION OF ANAESTHESIA
     Dosage: UNK
     Dates: start: 20110915
  5. IBUPROFEN [Concomitant]
  6. FENTANYL [Suspect]
     Indication: INDUCTION OF ANAESTHESIA
  7. MORPHINE SULFATE [Concomitant]

REACTIONS (4)
  - TACHYCARDIA [None]
  - ANAPHYLACTIC REACTION [None]
  - VENTRICULAR FIBRILLATION [None]
  - HYPOVENTILATION [None]
